FAERS Safety Report 6601343-3 (Version None)
Quarter: 2010Q1

REPORT INFORMATION
  Report Type: 
  Country: None (occurrence: None)
  Receive Date: 20100224
  Receipt Date: 20100224
  Transmission Date: 20100710
  Serious: Yes (Hospitalization)
  Sender: FDA-Public Use
  Company Number: None

PATIENT
  Sex: Female
  Weight: 53.5244 kg

DRUGS (1)
  1. TAMIFLU [Suspect]

REACTIONS (6)
  - ASTHENIA [None]
  - DYSPNOEA [None]
  - INCREASED UPPER AIRWAY SECRETION [None]
  - MUCOSAL DISCOLOURATION [None]
  - MYCOBACTERIUM TEST POSITIVE [None]
  - PULMONARY FUNCTION TEST DECREASED [None]
